FAERS Safety Report 8520537-3 (Version None)
Quarter: 2012Q3

REPORT INFORMATION
  Report Type: 
  Country: None (occurrence: None)
  Receive Date: 20120719
  Receipt Date: 20120712
  Transmission Date: 20120928
  Serious: Yes (Death, Hospitalization, Other)
  Sender: FDA-Public Use
  Company Number: CA-SANOFI-AVENTIS-2012SA046085

PATIENT
  Age: 51 Year
  Sex: Male

DRUGS (27)
  1. TYLENOL [Concomitant]
     Indication: PAIN MANAGEMENT
     Route: 048
     Dates: start: 20120316
  2. POTASSIUM CHLORIDE [Concomitant]
     Route: 042
     Dates: start: 20120531, end: 20120531
  3. SENOKOT /UNK/ [Concomitant]
     Indication: CONSTIPATION
     Route: 048
     Dates: start: 20120323
  4. SODIUM CHLORIDE [Concomitant]
     Indication: DEHYDRATION
     Route: 042
     Dates: start: 20120522, end: 20120525
  5. POTASSIUM CHLORIDE [Concomitant]
     Route: 042
     Dates: start: 20120601, end: 20120601
  6. POTASSIUM CHLORIDE [Concomitant]
     Route: 048
     Dates: start: 20120525, end: 20120529
  7. POTASSIUM CHLORIDE [Concomitant]
     Route: 048
     Dates: start: 20120529, end: 20120601
  8. PANTOPRAZOLE [Concomitant]
     Route: 048
     Dates: start: 20120102
  9. COLACE [Concomitant]
     Indication: CONSTIPATION
     Route: 048
     Dates: start: 20120323
  10. LAXATIVES [Concomitant]
     Indication: CONSTIPATION
     Route: 048
     Dates: start: 20120528
  11. CALCIUM CARBONATE [Concomitant]
     Route: 048
  12. OXALIPLATIN [Suspect]
     Route: 042
     Dates: start: 20120321, end: 20120710
  13. ENSURE [Concomitant]
     Route: 048
     Dates: start: 20120301
  14. DECADRON [Concomitant]
     Route: 048
     Dates: start: 20120321
  15. ATROPINE [Concomitant]
     Indication: PROPHYLAXIS
     Route: 058
     Dates: start: 20120321
  16. SODIUM CHLORIDE [Concomitant]
     Route: 042
     Dates: start: 20120531, end: 20120531
  17. POTASSIUM CHLORIDE [Concomitant]
     Route: 048
     Dates: start: 20120410, end: 20120416
  18. ADVIL [Concomitant]
     Indication: PAIN MANAGEMENT
     Route: 048
     Dates: start: 20120320
  19. IMMUNE GLOBULIN NOS [Concomitant]
     Route: 042
     Dates: start: 20060101
  20. SODIUM CHLORIDE [Concomitant]
     Route: 042
     Dates: start: 20120529, end: 20120529
  21. POTASSIUM CHLORIDE [Concomitant]
     Route: 042
     Dates: start: 20120525, end: 20120525
  22. POTASSIUM CHLORIDE [Concomitant]
     Route: 042
     Dates: start: 20120529, end: 20120529
  23. IRINOTECAN HCL [Suspect]
     Route: 042
     Dates: start: 20120321, end: 20120710
  24. POTASSIUM CHLORIDE [Concomitant]
     Route: 048
     Dates: start: 20120601, end: 20120605
  25. CAPECITABINE [Suspect]
     Dosage: BDX 14 DAYS
     Route: 048
     Dates: start: 20120322, end: 20120710
  26. MOTILIUM [Concomitant]
     Indication: PROPHYLAXIS
     Route: 048
     Dates: start: 20120523
  27. VITAMIN B-12 [Concomitant]
     Route: 030
     Dates: start: 19980101

REACTIONS (3)
  - SUPRAVENTRICULAR TACHYCARDIA [None]
  - HYPOKALAEMIA [None]
  - ASTHENIA [None]
